FAERS Safety Report 6038618-5 (Version None)
Quarter: 2009Q1

REPORT INFORMATION
  Report Type: 
  Country: None (occurrence: None)
  Receive Date: 20090114
  Receipt Date: 20090114
  Transmission Date: 20090719
  Serious: Yes (Other)
  Sender: FDA-Public Use
  Company Number: None

PATIENT
  Sex: Female
  Weight: 76.2043 kg

DRUGS (2)
  1. BONIVA [Suspect]
     Indication: MENOPAUSE
     Dates: start: 20030101, end: 20060101
  2. BONIVA [Suspect]
     Indication: RESORPTION BONE INCREASED
     Dates: start: 20030101, end: 20060101

REACTIONS (7)
  - DRUG INEFFECTIVE [None]
  - DRY SKIN [None]
  - INFECTION [None]
  - PAIN IN EXTREMITY [None]
  - PAIN OF SKIN [None]
  - PRURITUS [None]
  - SKIN DISORDER [None]
